FAERS Safety Report 13800884 (Version 1)
Quarter: 2017Q3

REPORT INFORMATION
  Report Type: Report from Study
  Country: None (occurrence: DE)
  Receive Date: 20170727
  Receipt Date: 20170727
  Transmission Date: 20171127
  Serious: Yes (Hospitalization)
  Sender: FDA-Public Use
  Company Number: DE-ABBVIE-17K-062-2051330-00

PATIENT
  Age: 65 Year
  Sex: Male

DRUGS (6)
  1. MTX [Suspect]
     Active Substance: METHOTREXATE SODIUM
     Route: 065
  2. MTX [Suspect]
     Active Substance: METHOTREXATE SODIUM
     Route: 065
     Dates: start: 2016
  3. HUMIRA [Suspect]
     Active Substance: ADALIMUMAB
     Indication: RHEUMATOID ARTHRITIS
     Route: 058
     Dates: start: 201507, end: 201608
  4. MTX [Suspect]
     Active Substance: METHOTREXATE SODIUM
     Route: 065
     Dates: end: 2015
  5. MTX [Suspect]
     Active Substance: METHOTREXATE SODIUM
     Indication: PRODUCT USED FOR UNKNOWN INDICATION
     Route: 065
     Dates: start: 2015
  6. REMICADE [Suspect]
     Active Substance: INFLIXIMAB
     Indication: PRODUCT USED FOR UNKNOWN INDICATION
     Route: 065
     Dates: start: 201608

REACTIONS (4)
  - Pneumonia pneumococcal [Unknown]
  - Pneumonia legionella [Unknown]
  - Transaminases increased [Unknown]
  - Hepatic cirrhosis [Unknown]

NARRATIVE: CASE EVENT DATE: 20160420
